FAERS Safety Report 21374624 (Version 1)
Quarter: 2022Q3

REPORT INFORMATION
  Report Type: Report from Study
  Country: US (occurrence: US)
  Receive Date: 20220926
  Receipt Date: 20220926
  Transmission Date: 20221027
  Serious: No
  Sender: FDA-Public Use
  Company Number: US-NOVARTISTESTPH-NVSC2022US216082

PATIENT
  Sex: Female

DRUGS (1)
  1. COSENTYX [Suspect]
     Active Substance: SECUKINUMAB
     Indication: Ankylosing spondylitis
     Dosage: ONCE A WEEK FOR 5 WEEKS THEN EVERY 4 WEEKS
     Route: 058
     Dates: start: 20220824

REACTIONS (3)
  - Spinal pain [Unknown]
  - Arthralgia [Unknown]
  - Drug ineffective [Unknown]
